FAERS Safety Report 5491445-X (Version None)
Quarter: 2007Q4

REPORT INFORMATION
  Report Type: 
  Country: None (occurrence: None)
  Receive Date: 20071018
  Receipt Date: 20071009
  Transmission Date: 20080405
  Serious: Yes (Death)
  Sender: FDA-Public Use
  Company Number: 2007-04561

PATIENT
  Age: 52 Year
  Sex: Male

DRUGS (1)
  1. FLUOROURACIL [Suspect]
     Indication: COLON CANCER
     Dosage: TOTAL CUMULATIVE DOSE 6,600MG/M2
     Dates: start: 20030201, end: 20030501

REACTIONS (2)
  - ACUTE PROMYELOCYTIC LEUKAEMIA [None]
  - SEPTIC SHOCK [None]
